FAERS Safety Report 25228370 (Version 3)
Quarter: 2025Q2

REPORT INFORMATION
  Report Type: Spontaneous
  Country: US (occurrence: US)
  Receive Date: 20250423
  Receipt Date: 20250609
  Transmission Date: 20250717
  Serious: No
  Sender: TOLMAR
  Company Number: US-Tolmar-TLM-2025-00766

PATIENT
  Age: 57 Year
  Sex: Male

DRUGS (3)
  1. ELIGARD [Suspect]
     Active Substance: LEUPROLIDE ACETATE
     Indication: Prostate cancer
     Route: 058
     Dates: start: 20241206
  2. DEVICE [Suspect]
     Active Substance: DEVICE
     Indication: Prostate cancer
     Route: 058
  3. BICALUTAMIDE [Concomitant]
     Active Substance: BICALUTAMIDE
     Indication: Prostate cancer

REACTIONS (2)
  - Blood testosterone increased [Unknown]
  - Drug ineffective [Unknown]

NARRATIVE: CASE EVENT DATE: 20250228
